FAERS Safety Report 16497256 (Version 1)
Quarter: 2019Q2

REPORT INFORMATION
  Report Type: Spontaneous
  Country: US (occurrence: US)
  Receive Date: 20190628
  Receipt Date: 20190628
  Transmission Date: 20190711
  Serious: Yes (Other)
  Sender: FDA-Public Use
  Company Number: US-JAZZ-2019-US-005280

PATIENT
  Sex: Female
  Weight: 45.35 kg

DRUGS (1)
  1. XYREM [Suspect]
     Active Substance: SODIUM OXYBATE
     Indication: NARCOLEPSY
     Dosage: 9 GRAM DOSE
     Route: 048

REACTIONS (2)
  - Anxiety [Not Recovered/Not Resolved]
  - Weight decreased [Unknown]
